FAERS Safety Report 5342697-8 (Version None)
Quarter: 2007Q2

REPORT INFORMATION
  Report Type: 
  Country: None (occurrence: None)
  Receive Date: 20070601
  Receipt Date: 20070207
  Transmission Date: 20071010
  Serious: Yes (Other)
  Sender: FDA-Public Use
  Company Number: A0638763A

PATIENT
  Age: 19 Year
  Sex: Male

DRUGS (2)
  1. AUGMENTIN '125' [Suspect]
     Indication: SINUSITIS
     Dosage: 875MG TWICE PER DAY
     Route: 048
     Dates: start: 20070122, end: 20070202
  2. LISINOPRIL [Concomitant]

REACTIONS (1)
  - ASPARTATE AMINOTRANSFERASE INCREASED [None]
